FAERS Safety Report 5002225-3 (Version None)
Quarter: 2006Q2

REPORT INFORMATION
  Report Type: 
  Country: None (occurrence: None)
  Receive Date: 20060510
  Receipt Date: 20060502
  Transmission Date: 20061013
  Serious: Yes (Death, Hospitalization, Other)
  Sender: FDA-Public Use
  Company Number: S06-USA-00215-01

PATIENT
  Age: 83 Year
  Sex: Female

DRUGS (4)
  1. NAMENDA [Suspect]
     Indication: DEMENTIA
     Dosage: 5 MG QD PO
     Route: 048
     Dates: start: 20051203, end: 20051206
  2. RISPERDAL [Concomitant]
  3. TRAZODONE HCL [Concomitant]
  4. ANTIHYPERTENSIVE MEDICATION [Concomitant]

REACTIONS (8)
  - CONFUSIONAL STATE [None]
  - DIFFICULTY IN WALKING [None]
  - IMPAIRED SELF-CARE [None]
  - LACK OF SPONTANEOUS SPEECH [None]
  - MOVEMENT DISORDER [None]
  - RENAL FAILURE [None]
  - RESPIRATORY FAILURE [None]
  - THROMBOSIS [None]
